FAERS Safety Report 23500926 (Version 1)
Quarter: 2024Q1

REPORT INFORMATION
  Report Type: Spontaneous
  Country: US (occurrence: US)
  Receive Date: 20240208
  Receipt Date: 20240208
  Transmission Date: 20240409
  Serious: No
  Sender: FDA-Public Use
  Company Number: US-PFIZER INC-202400031223

PATIENT
  Age: 23 Year
  Sex: Male
  Weight: 88 kg

DRUGS (1)
  1. SOMATROPIN [Suspect]
     Active Substance: SOMATROPIN
     Indication: Blood growth hormone decreased
     Dosage: 0.4MG ONCE A DAY AT NIGHT BY SUBCUTANEOUS INJECTION
     Route: 058
     Dates: start: 2023, end: 20240118

REACTIONS (1)
  - Therapeutic response unexpected [Unknown]
